FAERS Safety Report 4869774-X (Version None)
Quarter: 2005Q4

REPORT INFORMATION
  Report Type: 
  Country: None (occurrence: None)
  Receive Date: 20051223
  Receipt Date: 20051208
  Transmission Date: 20060501
  Serious: Yes (Hospitalization)
  Sender: FDA-Public Use
  Company Number: 2005BI022022

PATIENT
  Sex: Female

DRUGS (7)
  1. ZEVALIN [Suspect]
     Indication: B-CELL LYMPHOMA
     Dosage: 4.8 MCI; 1X; IV
     Route: 042
     Dates: start: 20050622, end: 20050622
  2. ZEVALIN [Suspect]
     Indication: B-CELL LYMPHOMA
     Dosage: 36.6 MCI; 1X; IV
     Route: 042
     Dates: start: 20050629, end: 20050629
  3. RITUXIMAB [Concomitant]
  4. BCNU [Concomitant]
  5. VP-16 [Concomitant]
  6. CYTARABINE [Concomitant]
  7. MELPHALAN [Concomitant]

REACTIONS (9)
  - ANAEMIA [None]
  - DIARRHOEA [None]
  - GASTRITIS FUNGAL [None]
  - GASTROINTESTINAL DISORDER [None]
  - HYPOMAGNESAEMIA [None]
  - INCONTINENCE [None]
  - PNEUMONIA KLEBSIELLA [None]
  - SALMONELLOSIS [None]
  - WEIGHT DECREASED [None]
